FAERS Safety Report 9958217 (Version 1)
Quarter: 2014Q1

REPORT INFORMATION
  Report Type: Report from Study
  Country: CN (occurrence: CN)
  Receive Date: 20140304
  Receipt Date: 20140304
  Transmission Date: 20141002
  Serious: Yes (Death)
  Sender: FDA-Public Use
  Company Number: CN-ROCHE-1359408

PATIENT
  Sex: 0

DRUGS (10)
  1. MYCOPHENOLATE MOFETIL [Suspect]
     Indication: PROPHYLAXIS AGAINST TRANSPLANT REJECTION
     Route: 065
  2. DACLIZUMAB [Suspect]
     Indication: PROPHYLAXIS AGAINST TRANSPLANT REJECTION
     Route: 042
  3. TACROLIMUS [Suspect]
     Indication: PROPHYLAXIS AGAINST TRANSPLANT REJECTION
     Route: 065
  4. GANCICLOVIR [Concomitant]
     Route: 065
  5. AZTREONAM [Concomitant]
  6. VANCOMYCIN [Concomitant]
  7. AMPHOTERICIN B [Concomitant]
  8. METRONIDAZOLE [Concomitant]
  9. FLUCONAZOLE [Concomitant]
  10. NORFLOXACIN [Concomitant]

REACTIONS (1)
  - Aspergillus infection [Fatal]
